FAERS Safety Report 8797757 (Version 4)
Quarter: 2013Q1

REPORT INFORMATION
  Report Type: Report from Study
  Country: JP (occurrence: JP)
  Receive Date: 20120920
  Receipt Date: 20130204
  Transmission Date: 20140127
  Serious: Yes (Hospitalization, Other)
  Sender: FDA-Public Use
  Company Number: JP-009507513-1209JPN005350

PATIENT
  Age: 49 Year
  Sex: Male
  Weight: 90 kg

DRUGS (30)
  1. PEGINTRON [Suspect]
     Indication: CHRONIC HEPATITIS C
     Dosage: 1.5 MICROGRAM PER KILOGRAM, QW
     Route: 058
     Dates: start: 20120710, end: 20120710
  2. PEGINTRON [Suspect]
     Dosage: 1.1 MICROGRAM PER KILOGRAM, QW
     Route: 058
     Dates: start: 20120719, end: 20120817
  3. PEGINTRON [Suspect]
     Dosage: 1.3 MICROGRAM PER KILOGRAM, QW
     Route: 058
     Dates: start: 20120824, end: 20120831
  4. REBETOL [Suspect]
     Indication: CHRONIC HEPATITIS C
     Dosage: 1000 MG, QD
     Route: 048
     Dates: start: 20120710, end: 20120716
  5. REBETOL [Suspect]
     Dosage: 400 MG, QD
     Route: 048
     Dates: start: 20120719, end: 20120723
  6. REBETOL [Suspect]
     Dosage: 600 MG, QD
     Route: 048
     Dates: start: 20120724, end: 20120823
  7. REBETOL [Suspect]
     Dosage: 800 MG, QD
     Route: 048
     Dates: start: 20120824, end: 20120902
  8. TELAVIC [Suspect]
     Indication: CHRONIC HEPATITIS C
     Dosage: 2250 MG, QD
     Route: 048
     Dates: start: 20120710, end: 20120713
  9. TELAVIC [Suspect]
     Dosage: 750 MG, QD
     Route: 048
     Dates: start: 20120719, end: 20120809
  10. TELAVIC [Suspect]
     Dosage: 1500 MG, QD
     Route: 048
     Dates: start: 20120810, end: 20120816
  11. TELAVIC [Suspect]
     Dosage: 750 MG, QD
     Route: 048
     Dates: start: 20120817, end: 20120902
  12. SELARA [Concomitant]
     Indication: HYPERTENSION
     Dosage: 50 MG, QD
     Route: 048
     Dates: end: 20120722
  13. ALCENOL [Concomitant]
     Indication: HYPERTENSION
     Dosage: 25 MG, QD
     Route: 048
     Dates: end: 20120722
  14. AMLODIN (AMLODIPINE BESYLATE) [Concomitant]
     Indication: HYPERTENSION
     Dosage: 10 MG, QD
     Route: 048
     Dates: end: 20120722
  15. AMLODIN (AMLODIPINE BESYLATE) [Concomitant]
     Dosage: 5 MG, QD
     Route: 048
     Dates: start: 20120723
  16. ALOSITOL [Concomitant]
     Dosage: 200 MG, QD
     Route: 048
     Dates: start: 20120713, end: 20120719
  17. ALOSITOL [Concomitant]
     Dosage: 100 MG, QD
     Route: 048
     Dates: start: 20120718
  18. PREDONINE [Concomitant]
     Dosage: 10 MG, QD
     Route: 048
     Dates: start: 20120831, end: 20120902
  19. PREDONINE [Concomitant]
     Dosage: 40 MG, QD
     Route: 048
     Dates: start: 20120909, end: 20120911
  20. PREDONINE [Concomitant]
     Dosage: 30 MG, QD
     Route: 048
     Dates: start: 20120912, end: 20120914
  21. PREDONINE [Concomitant]
     Dosage: 20 MG, QD
     Route: 048
     Dates: start: 20120915, end: 20120917
  22. PREDONINE [Concomitant]
     Dosage: 10 MG, QD
     Route: 048
     Dates: start: 20120918, end: 20120920
  23. DIACORT [Concomitant]
     Dosage: UNK, PRN
     Route: 061
     Dates: start: 20120831, end: 20120928
  24. PREDONINE [Concomitant]
     Dosage: 60 MG, QD
     Route: 051
     Dates: start: 20120903, end: 20120905
  25. PREDONINE [Concomitant]
     Dosage: 50 MG, QD
     Route: 051
     Dates: start: 20120906, end: 20120908
  26. CELESTAMINE COMBINATION TABLETS [Concomitant]
     Dosage: 2 DF, QD
     Route: 048
     Dates: start: 20120903, end: 20120914
  27. PARIET [Concomitant]
     Dosage: 10 MG, QD
     Route: 048
     Dates: start: 20120903, end: 20120920
  28. LOCOID [Concomitant]
     Dosage: UNK, PRN ON THE FACE
     Route: 061
     Dates: start: 20120905, end: 20120928
  29. [THERAPY UNSPECIFIED] [Concomitant]
     Indication: PRURITUS
     Dosage: UNK UNK, PRN
     Route: 061
     Dates: start: 20120914, end: 20120928
  30. POLYETHYLENE [Concomitant]
     Dosage: UNK, PRN, FORMULATION : EXT
     Route: 051
     Dates: start: 20120831, end: 20120928

REACTIONS (2)
  - Skin disorder [Not Recovered/Not Resolved]
  - Rash [Unknown]
